FAERS Safety Report 10010139 (Version 1)
Quarter: 2014Q1

REPORT INFORMATION
  Report Type: Spontaneous
  Country: FR (occurrence: FR)
  Receive Date: 20140313
  Receipt Date: 20140313
  Transmission Date: 20141002
  Serious: Yes (Hospitalization, Other)
  Sender: FDA-Public Use
  Company Number: FR-RB-064455-14

PATIENT
  Sex: Female

DRUGS (3)
  1. SUBUTEX [Suspect]
     Dosage: DOSING DETAILS UNKNOWN (MASSIVE DOSES)
     Route: 065
  2. SUBUTEX [Suspect]
     Indication: PRODUCT USED FOR UNKNOWN INDICATION
     Dosage: DOSING DETAILS UNKNOWN - EXPOSURE VIA HUSBAND
     Route: 050
  3. ALCOHOL [Suspect]
     Indication: PRODUCT USED FOR UNKNOWN INDICATION
     Dosage: DOSING DETAILS UNKNOWN
     Route: 065

REACTIONS (8)
  - Hospitalisation [Unknown]
  - Intentional overdose [Unknown]
  - Substance abuse [Unknown]
  - Drug abuse [Unknown]
  - Maternal exposure during pregnancy [Recovered/Resolved]
  - Exposure via father [Recovered/Resolved]
  - Foetal growth restriction [Recovered/Resolved]
  - Premature delivery [Recovered/Resolved]
